FAERS Safety Report 6248143-4 (Version None)
Quarter: 2009Q2

REPORT INFORMATION
  Report Type: 
  Country: None (occurrence: None)
  Receive Date: 20090624
  Receipt Date: 20090624
  Transmission Date: 20091009
  Serious: Yes (Other)
  Sender: FDA-Public Use
  Company Number: None

PATIENT
  Age: 56 Year
  Sex: Male
  Weight: 76.2043 kg

DRUGS (1)
  1. NAPROXEN [Suspect]
     Indication: INFLAMMATION
     Dosage: THUR - DOCTORS FOR MEDICADE

REACTIONS (1)
  - HAEMORRHAGE [None]
